FAERS Safety Report 8041886-1 (Version None)
Quarter: 2012Q1

REPORT INFORMATION
  Report Type: 
  Country: None (occurrence: None)
  Receive Date: 20120112
  Receipt Date: 20120112
  Transmission Date: 20120608
  Serious: No
  Sender: FDA-Public Use
  Company Number: None

PATIENT
  Age: 29 Year
  Sex: Female
  Weight: 132.44 kg

DRUGS (2)
  1. BUPROPION HYDROCHLORIDE [Suspect]
     Indication: ANXIETY
     Dosage: 150MG
     Route: 048
     Dates: start: 20111228, end: 20120109
  2. BUPROPION HYDROCHLORIDE [Suspect]
     Indication: DEPRESSION
     Dosage: 150MG
     Route: 048
     Dates: start: 20111228, end: 20120109

REACTIONS (10)
  - HEADACHE [None]
  - DIZZINESS [None]
  - DEPRESSION [None]
  - CONDITION AGGRAVATED [None]
  - PAIN [None]
  - FEELING ABNORMAL [None]
  - ABDOMINAL PAIN [None]
  - ASTHENIA [None]
  - NAUSEA [None]
  - VISION BLURRED [None]
